FAERS Safety Report 9555283 (Version 3)
Quarter: 2013Q4

REPORT INFORMATION
  Report Type: Report from Study
  Country: US (occurrence: US)
  Receive Date: 20130926
  Receipt Date: 20131231
  Transmission Date: 20140711
  Serious: Yes (Life-Threatening, Hospitalization)
  Sender: FDA-Public Use
  Company Number: US-CELGENEUS-163-C4047-13090496

PATIENT
  Age: 76 Year
  Sex: Male
  Weight: 95.34 kg

DRUGS (14)
  1. CC-4047 [Suspect]
     Indication: PLASMA CELL MYELOMA
     Dosage: 2 MILLIGRAM
     Route: 065
     Dates: start: 20130422
  2. CC-4047 [Suspect]
     Dosage: 2 MILLIGRAM
     Route: 065
     Dates: start: 20130813, end: 20130826
  3. CYCLOPHOSPHAMIDE [Suspect]
     Indication: PLASMA CELL MYELOMA
     Route: 048
  4. CYCLOPHOSPHAMIDE [Suspect]
     Dosage: 50 MILLIGRAM
     Route: 048
     Dates: start: 20121011
  5. DEXAMETHASONE [Suspect]
     Indication: PLASMA CELL MYELOMA
     Route: 065
  6. DEXAMETHASONE [Suspect]
     Route: 065
     Dates: start: 20091210
  7. DEXAMETHASONE [Suspect]
     Route: 065
     Dates: start: 20100310
  8. REVLIMID [Suspect]
     Indication: PLASMA CELL MYELOMA
     Route: 048
     Dates: start: 2009, end: 2009
  9. REVLIMID [Suspect]
     Dosage: 15 MILLIGRAM
     Route: 048
     Dates: start: 20091111
  10. REVLIMID [Suspect]
     Route: 048
     Dates: start: 20100310
  11. REVLIMID [Suspect]
     Dosage: 15 MILLIGRAM
     Route: 048
     Dates: start: 20100510, end: 201108
  12. REVLIMID [Suspect]
     Route: 048
     Dates: start: 20110830
  13. REVLIMID [Suspect]
     Route: 048
     Dates: start: 201204, end: 20120523
  14. REVLIMID [Suspect]
     Route: 048
     Dates: start: 20120913, end: 20130226

REACTIONS (3)
  - Acute myeloid leukaemia [Not Recovered/Not Resolved]
  - Asthenia [Not Recovered/Not Resolved]
  - Febrile neutropenia [Not Recovered/Not Resolved]
